FAERS Safety Report 8450135-1 (Version None)
Quarter: 2012Q2

REPORT INFORMATION
  Report Type: 
  Country: None (occurrence: None)
  Receive Date: 20120613
  Receipt Date: 20120530
  Transmission Date: 20120825
  Serious: Yes (Other)
  Sender: FDA-Public Use
  Company Number: MPS1-1000701

PATIENT
  Age: 19 Year
  Sex: Male
  Weight: 60 kg

DRUGS (1)
  1. ALDURAZYME [Suspect]
     Indication: MUCOPOLYSACCHARIDOSIS
     Dosage: 0.58 MG/KG, Q2W, INTRAVENOUS
     Route: 018
     Dates: start: 20050201

REACTIONS (1)
  - GRAND MAL CONVULSION [None]
